FAERS Safety Report 19213621 (Version 7)
Quarter: 2025Q3

REPORT INFORMATION
  Report Type: Spontaneous
  Country: CA (occurrence: CA)
  Receive Date: 20210505
  Receipt Date: 20250803
  Transmission Date: 20251020
  Serious: Yes (Life-Threatening, Hospitalization, Other)
  Sender: ALEXION PHARMACEUTICALS
  Company Number: 2021A365696

PATIENT
  Age: 52 Year
  Sex: Female

DRUGS (15)
  1. BUDESONIDE\FORMOTEROL [Interacting]
     Active Substance: BUDESONIDE\FORMOTEROL
     Indication: Nasal congestion
  2. BUDESONIDE\FORMOTEROL [Interacting]
     Active Substance: BUDESONIDE\FORMOTEROL
  3. BUDESONIDE\FORMOTEROL [Interacting]
     Active Substance: BUDESONIDE\FORMOTEROL
  4. DULOXETINE [Interacting]
     Active Substance: DULOXETINE
     Indication: Sciatica
     Route: 065
  5. DULOXETINE [Interacting]
     Active Substance: DULOXETINE
     Indication: Product used for unknown indication
     Dosage: 60 MILLIGRAM, QD
     Route: 065
  6. DULOXETINE [Interacting]
     Active Substance: DULOXETINE
     Dosage: 30 MILLIGRAM, BID
     Route: 065
  7. DULOXETINE [Interacting]
     Active Substance: DULOXETINE
     Dosage: 30 MILLIGRAM, QD
     Route: 065
  8. XYLOMETAZOLINE HYDROCHLORIDE [Interacting]
     Active Substance: XYLOMETAZOLINE HYDROCHLORIDE
     Indication: Nasal congestion
     Dosage: 1 DOSAGE FORM, QD
  9. XYLOMETAZOLINE HYDROCHLORIDE [Interacting]
     Active Substance: XYLOMETAZOLINE HYDROCHLORIDE
     Indication: Product used for unknown indication
     Dosage: UNK UNK, QD
     Route: 065
  10. XYLOMETAZOLINE HYDROCHLORIDE [Interacting]
     Active Substance: XYLOMETAZOLINE HYDROCHLORIDE
  11. XYLOMETAZOLINE HYDROCHLORIDE [Interacting]
     Active Substance: XYLOMETAZOLINE HYDROCHLORIDE
     Route: 065
  12. XYLOMETAZOLINE HYDROCHLORIDE [Interacting]
     Active Substance: XYLOMETAZOLINE HYDROCHLORIDE
     Dosage: 1 DOSAGE FORM, QD
  13. XYLOMETAZOLINE HYDROCHLORIDE [Interacting]
     Active Substance: XYLOMETAZOLINE HYDROCHLORIDE
     Dosage: 1 DOSAGE FORM, QD
  14. ALBUTEROL [Interacting]
     Active Substance: ALBUTEROL
     Indication: Asthma
     Route: 065
  15. ALBUTEROL [Interacting]
     Active Substance: ALBUTEROL
     Indication: Product used for unknown indication
     Route: 065

REACTIONS (15)
  - Rhinorrhoea [Unknown]
  - Allergy to animal [Recovered/Resolved]
  - Cerebral artery stenosis [Recovered/Resolved]
  - Nasal mucosal disorder [Recovered/Resolved]
  - Nasal septum deviation [Recovered/Resolved]
  - Nasal turbinate hypertrophy [Recovered/Resolved]
  - Rebound nasal congestion [Recovered/Resolved]
  - Reversible cerebral vasoconstriction syndrome [Recovered/Resolved]
  - Rhinorrhoea [Recovered/Resolved]
  - Subarachnoid haemorrhage [Recovered/Resolved]
  - Thunderclap headache [Recovered/Resolved]
  - Hypertension [Recovered/Resolved]
  - Product use in unapproved indication [Recovered/Resolved]
  - Drug interaction [Recovered/Resolved]
  - Headache [Recovered/Resolved]
